FAERS Safety Report 18125530 (Version 1)
Quarter: 2020Q3

REPORT INFORMATION
  Report Type: Spontaneous
  Country: US (occurrence: US)
  Receive Date: 20200807
  Receipt Date: 20200807
  Transmission Date: 20201103
  Serious: No
  Sender: FDA-Public Use
  Company Number: US-ROCHE-2523062

PATIENT
  Sex: Female
  Weight: 81.72 kg

DRUGS (2)
  1. HERCEPTIN [Suspect]
     Active Substance: TRASTUZUMAB
     Indication: HER2 POSITIVE BREAST CANCER
     Route: 042
     Dates: start: 20191030
  2. PERJETA [Suspect]
     Active Substance: PERTUZUMAB
     Indication: HER2 POSITIVE BREAST CANCER
     Route: 042
     Dates: start: 20191030

REACTIONS (8)
  - Stomatitis [Unknown]
  - Epistaxis [Unknown]
  - Diarrhoea [Unknown]
  - Acne [Unknown]
  - Alopecia [Unknown]
  - Lacrimation increased [Unknown]
  - Constipation [Unknown]
  - Fatigue [Unknown]
